FAERS Safety Report 8987379 (Version 1)
Quarter: 2012Q4

REPORT INFORMATION
  Report Type: Report from Study
  Country: US (occurrence: US)
  Receive Date: 20121226
  Receipt Date: 20121226
  Transmission Date: 20130627
  Serious: Yes (Hospitalization)
  Sender: FDA-Public Use
  Company Number: US-009507513-1212USA009332

PATIENT
  Age: 69 Year

DRUGS (3)
  1. DEXAMETHASONE [Suspect]
     Dosage: 40 mg, UNK
     Route: 048
  2. CYCLOPHOSPHAMIDE [Suspect]
     Indication: MULTIPLE MYELOMA
     Dosage: UNK
     Dates: start: 20120622
  3. BORTEZOMIB [Suspect]
     Indication: MULTIPLE MYELOMA
     Dosage: 1.3 mg/m2, 2x a week
     Route: 058
     Dates: start: 20120416

REACTIONS (1)
  - Colitis [Recovered/Resolved]
